FAERS Safety Report 18868865 (Version 2)
Quarter: 2021Q2

REPORT INFORMATION
  Report Type: Other
  Country: CL (occurrence: CL)
  Receive Date: 20210210
  Receipt Date: 20210406
  Transmission Date: 20210717
  Serious: Yes (Death, Hospitalization)
  Sender: FDA-Public Use
  Company Number: CL-ROCHE-2727510

PATIENT
  Age: 67 Year
  Sex: Male

DRUGS (2)
  1. BEVACIZUMAB. [Suspect]
     Active Substance: BEVACIZUMAB
     Indication: HEPATOCELLULAR CARCINOMA
     Dosage: DOSE AND FREQUENCY WERE NOT REPORTED.?MOST RECENT DOSE OF BEVACIZUMAB ON 04/NOV/2020.
     Route: 065
     Dates: start: 20201007
  2. ATEZOLIZUMAB. [Suspect]
     Active Substance: ATEZOLIZUMAB
     Indication: HEPATOCELLULAR CARCINOMA
     Dosage: DOSE AND FREQUENCY WERE NOT REPORTED?MOST RECENT DOSE OF ATEZOLIZUMAB ON 04/NOV/2020.
     Route: 041
     Dates: start: 20201007

REACTIONS (6)
  - Product use in unapproved indication [Unknown]
  - Transaminases increased [Unknown]
  - Protein total decreased [Unknown]
  - Laboratory test abnormal [Unknown]
  - Upper gastrointestinal haemorrhage [Fatal]
  - Off label use [Unknown]
